FAERS Safety Report 10947632 (Version 1)
Quarter: 2015Q1

REPORT INFORMATION
  Report Type: Spontaneous
  Country: AE (occurrence: AE)
  Receive Date: 20150323
  Receipt Date: 20150323
  Transmission Date: 20150721
  Serious: Yes (Hospitalization)
  Sender: FDA-Public Use
  Company Number: AE-MYLANLABS-2015M1009252

PATIENT

DRUGS (3)
  1. PHENYTOIN. [Suspect]
     Active Substance: PHENYTOIN
     Indication: STATUS EPILEPTICUS
     Dosage: LOADING DOSE
     Route: 065
  2. LORAZEPAM. [Concomitant]
     Active Substance: LORAZEPAM
     Indication: STATUS EPILEPTICUS
     Route: 042
  3. DIAZEPAM. [Concomitant]
     Active Substance: DIAZEPAM
     Indication: STATUS EPILEPTICUS
     Route: 042

REACTIONS (1)
  - Hypotension [Unknown]
